FAERS Safety Report 6380911-0 (Version None)
Quarter: 2009Q3

REPORT INFORMATION
  Report Type: 
  Country: None (occurrence: None)
  Receive Date: 20090929
  Receipt Date: 20090921
  Transmission Date: 20100115
  Serious: Yes (Life-Threatening)
  Sender: FDA-Public Use
  Company Number: B0595257A

PATIENT
  Sex: Male

DRUGS (7)
  1. AUGMENTIN '125' [Suspect]
     Dosage: 2G PER DAY
     Route: 048
     Dates: start: 20090822, end: 20090824
  2. TACHIPIRINA [Suspect]
     Dosage: 1G PER DAY
     Route: 048
     Dates: start: 20090822, end: 20090824
  3. MORPHINE SULFATE [Concomitant]
     Indication: DRUG USE FOR UNKNOWN INDICATION
     Dosage: 30MG PER DAY
     Route: 048
  4. DEXAMETHASONE 4MG TAB [Concomitant]
     Indication: DRUG USE FOR UNKNOWN INDICATION
     Dosage: 24MG PER DAY
     Route: 042
  5. LANSOPRAZOLE [Concomitant]
     Indication: DRUG USE FOR UNKNOWN INDICATION
     Dosage: 30MG PER DAY
     Route: 048
  6. PREGABALIN [Concomitant]
     Indication: DRUG USE FOR UNKNOWN INDICATION
     Dosage: 75MG PER DAY
     Route: 048
  7. SERTRALINE HCL [Concomitant]
     Indication: DRUG USE FOR UNKNOWN INDICATION
     Dosage: 50MG PER DAY
     Route: 048

REACTIONS (3)
  - ACUTE RESPIRATORY FAILURE [None]
  - HEPATIC ENZYME INCREASED [None]
  - HEPATITIS [None]
